FAERS Safety Report 10226407 (Version 2)
Quarter: 2014Q2

REPORT INFORMATION
  Report Type: Spontaneous
  Country: US (occurrence: US)
  Receive Date: 20140609
  Receipt Date: 20140609
  Transmission Date: 20141212
  Serious: No
  Sender: FDA-Public Use
  Company Number: US-AMGEN INC.-USASP2013042742

PATIENT
  Age: 67 Year
  Sex: Male
  Weight: 95.7 kg

DRUGS (1)
  1. PROCRIT [Suspect]
     Indication: RENAL FAILURE CHRONIC
     Dosage: 10000 UNIT/ML SDV, UNK
     Route: 065

REACTIONS (3)
  - Medication error [Recovered/Resolved]
  - Haemoglobin increased [Unknown]
  - Injection site pain [Recovered/Resolved]
